FAERS Safety Report 11403888 (Version 1)
Quarter: 2015Q3

REPORT INFORMATION
  Report Type: Spontaneous
  Country: US (occurrence: US)
  Receive Date: 20150821
  Receipt Date: 20150821
  Transmission Date: 20151125
  Serious: No
  Sender: FDA-Public Use
  Company Number: GXBR2015US001795

PATIENT
  Sex: Female

DRUGS (1)
  1. ZINC OXIDE. [Suspect]
     Active Substance: ZINC OXIDE
     Indication: PROMOTION OF WOUND HEALING
     Dosage: 1 DF, ONCE/SINGLE
     Route: 061
     Dates: start: 201507

REACTIONS (1)
  - Intentional product misuse [Recovered/Resolved]
